FAERS Safety Report 6796368-1 (Version None)
Quarter: 2010Q2

REPORT INFORMATION
  Report Type: 
  Country: None (occurrence: None)
  Receive Date: 20100622
  Receipt Date: 20100615
  Transmission Date: 20101027
  Serious: Yes (Hospitalization)
  Sender: FDA-Public Use
  Company Number: 010776

PATIENT
  Sex: Female
  Weight: 74.5 kg

DRUGS (4)
  1. CERTOLIZUMAB PEGOL (CERTOLIZUMAB PEGOL) [Suspect]
     Indication: CROHN'S DISEASE
     Dosage: 400 MG 1X/2 WEEKS, 400 MG 1X/MONTH SUBCUTANEOUS
     Dates: start: 20100419
  2. PENTASA [Concomitant]
  3. EMCONCOR [Concomitant]
  4. BUSCOPAN [Concomitant]

REACTIONS (2)
  - ABDOMINAL WALL ABSCESS [None]
  - ILEAL PERFORATION [None]
